FAERS Safety Report 6447374-8 (Version None)
Quarter: 2009Q4

REPORT INFORMATION
  Report Type: 
  Country: None (occurrence: None)
  Receive Date: 20091119
  Receipt Date: 20091106
  Transmission Date: 20100525
  Serious: Yes (Other)
  Sender: FDA-Public Use
  Company Number: FR-ELI_LILLY_AND_COMPANY-FR200910003481

PATIENT
  Age: 74 Year
  Sex: Male

DRUGS (1)
  1. PROZAC [Suspect]
     Dosage: 20 MG, DAILY (1/D) (FIVE DAYS A WEEK)
     Route: 065
     Dates: start: 20010101

REACTIONS (1)
  - DIABETES MELLITUS [None]
